FAERS Safety Report 18722000 (Version 2)
Quarter: 2021Q1

REPORT INFORMATION
  Report Type: Spontaneous
  Country: DE (occurrence: DE)
  Receive Date: 20210111
  Receipt Date: 20210206
  Transmission Date: 20210419
  Serious: Yes (Life-Threatening, Other)
  Sender: FDA-Public Use
  Company Number: DE-AUROBINDO-AUR-APL-2021-000284

PATIENT
  Age: 52 Year
  Sex: Male
  Weight: 100 kg

DRUGS (3)
  1. RAMIPRIL 10MG [Suspect]
     Active Substance: RAMIPRIL
     Indication: HYPERTENSION
     Dosage: 5 MILLIGRAM, 1 TOTAL (FIRST TAKE)
     Route: 048
     Dates: start: 20201223
  2. LORATADINE. [Concomitant]
     Active Substance: LORATADINE
     Indication: PRODUCT USED FOR UNKNOWN INDICATION
     Dosage: 10 MILLIGRAM, ONCE A DAY (AT NIGHT, TAKEN MORE OFTEN RECENTLY)
     Route: 065
  3. ACETYLSALICYLIC ACID [Concomitant]
     Active Substance: ASPIRIN
     Indication: HEADACHE
     Dosage: 40 MILLIGRAM
     Route: 048
     Dates: start: 20201223

REACTIONS (3)
  - Pharyngeal swelling [Recovered/Resolved]
  - Dyspnoea [Recovered/Resolved]
  - Hypersensitivity [Recovered/Resolved]

NARRATIVE: CASE EVENT DATE: 20201223
